FAERS Safety Report 9463787 (Version 2)
Quarter: 2013Q3

REPORT INFORMATION
  Report Type: Spontaneous
  Country: GB (occurrence: GB)
  Receive Date: 20130819
  Receipt Date: 20130819
  Transmission Date: 20140515
  Serious: No
  Sender: FDA-Public Use
  Company Number: GB-JNJFOC-20130507791

PATIENT
  Age: 36 Year
  Sex: Male
  Weight: 118 kg

DRUGS (8)
  1. STELARA [Suspect]
     Indication: PSORIASIS
     Route: 058
  2. STELARA [Suspect]
     Indication: PSORIASIS
     Route: 058
     Dates: start: 201301, end: 20130215
  3. METHOTREXATE [Concomitant]
     Indication: PSORIASIS
     Route: 048
     Dates: start: 20120828, end: 20130505
  4. METHOTREXATE [Concomitant]
     Indication: PSORIASIS
     Route: 048
  5. OMEPRAZOLE [Concomitant]
     Indication: DYSPEPSIA
     Route: 048
     Dates: start: 2011
  6. ALLOPURINOL [Concomitant]
     Indication: GOUT
     Route: 048
     Dates: start: 2010
  7. CITALOPRAM [Concomitant]
     Indication: DEPRESSION
     Route: 048
     Dates: start: 2008
  8. CO CODAMOL [Concomitant]
     Indication: ARTHRITIS
     Route: 048
     Dates: start: 2011

REACTIONS (5)
  - Dysgeusia [Recovered/Resolved]
  - Dizziness [Recovered/Resolved]
  - Feeling abnormal [Recovered/Resolved]
  - Arthritis [Not Recovered/Not Resolved]
  - Psoriasis [Not Recovered/Not Resolved]
